FAERS Safety Report 12252296 (Version 2)
Quarter: 2016Q2

REPORT INFORMATION
  Report Type: Spontaneous
  Country: JP (occurrence: JP)
  Receive Date: 20160411
  Receipt Date: 20160516
  Transmission Date: 20160815
  Serious: Yes (Other)
  Sender: FDA-Public Use
  Company Number: JP-009507513-1604JPN004137

PATIENT
  Age: 67 Year
  Sex: Female
  Weight: 48 kg

DRUGS (11)
  1. ATELEC [Concomitant]
     Active Substance: CILNIDIPINE
     Indication: HYPERTENSION
     Dosage: DAILY DOSAGE UNKNOWN
     Route: 048
  2. MUCODYNE [Concomitant]
     Active Substance: CARBOCYSTEINE
     Indication: SINUSITIS
     Dosage: 1 G, QD
     Route: 048
     Dates: start: 20151218
  3. LYRICA [Suspect]
     Active Substance: PREGABALIN
     Dosage: 150 MG PER 1 DAY DIVIDED DOSE FREQUENCY UNKNOWN
     Route: 048
     Dates: start: 20160113
  4. PROMAC (POLAPREZINC) [Concomitant]
     Active Substance: POLAPREZINC
     Indication: ABDOMINAL PAIN UPPER
     Dosage: DAILY DOSAGE UNKNOWN; PER ORAL (POR) FORMULATION
     Route: 048
  5. ASMANEX [Suspect]
     Active Substance: MOMETASONE FUROATE
     Indication: ASTHMA
     Dosage: 200 MICROGRAM PER 1 DAY; DIVIDED DOSE FREQUENCY UNKNOWN
     Route: 055
  6. LYRICA [Suspect]
     Active Substance: PREGABALIN
     Dosage: 50MG PER 1 DAY; DIVIDED DOSE FREQUENCY UNKNOWN
     Route: 048
     Dates: start: 20151223, end: 20151229
  7. LYRICA [Suspect]
     Active Substance: PREGABALIN
     Dosage: 100 MG PER 1 DAY; DIVIDED DOSE FREQUENCY UNKNOWN
     Route: 048
     Dates: start: 20151230, end: 20160112
  8. ACINON [Concomitant]
     Active Substance: NIZATIDINE
     Indication: ABDOMINAL PAIN UPPER
     Dosage: DAILY DOSAGE UNKNOWN; PER ORAL (POR) FORMULATION
     Route: 048
  9. LYRICA [Suspect]
     Active Substance: PREGABALIN
     Indication: NEURALGIA
     Dosage: 25 MG, HS
     Route: 048
     Dates: start: 20151216, end: 20151222
  10. KLARICID [Suspect]
     Active Substance: CLARITHROMYCIN
     Indication: SINUSITIS
     Dosage: 400 MG PER 1 DAY; DIVIDED DOSE FREQUENCY UNKNOWN
     Route: 048
     Dates: start: 20151218
  11. MAGMITT [Concomitant]
     Active Substance: MAGNESIUM OXIDE
     Indication: CONSTIPATION
     Dosage: DAILY DOSAGE UNKNOWN; PER ORAL (POR) FORMULATION
     Route: 048

REACTIONS (2)
  - Glaucoma [Recovering/Resolving]
  - Uveitis [Recovering/Resolving]

NARRATIVE: CASE EVENT DATE: 20160201
